FAERS Safety Report 17599864 (Version 2)
Quarter: 2020Q2

REPORT INFORMATION
  Report Type: Spontaneous
  Country: CN (occurrence: CN)
  Receive Date: 20200330
  Receipt Date: 20200501
  Transmission Date: 20200713
  Serious: Yes (Other)
  Sender: FDA-Public Use
  Company Number: CN-PFIZER INC-2020130641

PATIENT
  Age: 87 Year
  Sex: Female

DRUGS (7)
  1. GLUCOSE INTRAVENOUS [Concomitant]
     Dosage: UNK
     Route: 041
     Dates: start: 20200310, end: 20200313
  2. SODIUM CHLORIDE. [Concomitant]
     Active Substance: SODIUM CHLORIDE
     Dosage: UNK
     Route: 041
     Dates: start: 20200308, end: 20200313
  3. SULPERAZON [Concomitant]
     Active Substance: CEFOPERAZONE SODIUM\SULBACTAM SODIUM
     Indication: ANTI-INFECTIVE THERAPY
     Dosage: 3 G, 1X/DAY
     Dates: end: 20200313
  4. SODIUM CHLORIDE. [Concomitant]
     Active Substance: SODIUM CHLORIDE
     Dosage: 100 ML, 1X/DAY
     Route: 041
  5. LINEZOLID. [Concomitant]
     Active Substance: LINEZOLID
     Indication: ANTI-INFECTIVE THERAPY
     Dosage: 0.6 G, 2X/DAY
     Dates: start: 20200310, end: 20200313
  6. FLUCONAZOLE. [Suspect]
     Active Substance: FLUCONAZOLE
     Indication: ANTI-INFECTIVE THERAPY
     Dosage: 0.4 G, 1X/DAY
     Route: 041
     Dates: start: 20200308, end: 20200313
  7. FLUCONAZOLE. [Suspect]
     Active Substance: FLUCONAZOLE
     Indication: LUNG ABSCESS

REACTIONS (6)
  - Delirium [Unknown]
  - Altered state of consciousness [Unknown]
  - Off label use [Unknown]
  - Mania [Unknown]
  - Communication disorder [Unknown]
  - Drug ineffective for unapproved indication [Unknown]

NARRATIVE: CASE EVENT DATE: 202003
